FAERS Safety Report 7617194-7 (Version None)
Quarter: 2011Q3

REPORT INFORMATION
  Report Type: 
  Country: None (occurrence: None)
  Receive Date: 20110718
  Receipt Date: 20110706
  Transmission Date: 20111222
  Serious: Yes (Other)
  Sender: FDA-Public Use
  Company Number: CA-JNJFOC-20110703358

PATIENT
  Sex: Female
  Weight: 59 kg

DRUGS (4)
  1. VITAMIN B-12 [Concomitant]
  2. REMICADE [Suspect]
     Dosage: 41ST INFUSION
     Route: 042
     Dates: start: 20110706
  3. REMICADE [Suspect]
     Dosage: THIS WAS PATIENT'S 40TH INFLIXIMAB INFUSION
     Route: 042
     Dates: start: 20110525
  4. REMICADE [Suspect]
     Indication: CROHN'S DISEASE
     Route: 042
     Dates: start: 20060321

REACTIONS (1)
  - FISTULA [None]
